FAERS Safety Report 8608896-4 (Version None)
Quarter: 2012Q3

REPORT INFORMATION
  Report Type: 
  Country: None (occurrence: None)
  Receive Date: 20120821
  Receipt Date: 19960723
  Transmission Date: 20120928
  Serious: Yes (Hospitalization)
  Sender: FDA-Public Use
  Company Number: US-ROCHE-1101362

PATIENT
  Sex: Male

DRUGS (1)
  1. ACTIVASE [Suspect]
     Indication: MYOCARDIAL INFARCTION

REACTIONS (6)
  - GENERAL PHYSICAL HEALTH DETERIORATION [None]
  - VENTRICULAR TACHYCARDIA [None]
  - PULMONARY OEDEMA [None]
  - ACIDOSIS [None]
  - CHEST PAIN [None]
  - HYPOTENSION [None]
